FAERS Safety Report 15337733 (Version 4)
Quarter: 2021Q4

REPORT INFORMATION
  Report Type: Other
  Country: DE (occurrence: None)
  Receive Date: 20180831
  Receipt Date: 20211221
  Transmission Date: 20220303
  Serious: Yes (Death, Disabling, Congenital Anomaly, Other)
  Sender: FDA-Public Use
  Company Number: DE-NODEN PHARMA DAC-NOD-2015-000306

PATIENT
  Weight: 0.056 kg

DRUGS (60)
  1. RASILEZ [Suspect]
     Active Substance: ALISKIREN
     Indication: Foetal exposure during pregnancy
     Dosage: 300 MG, QD
     Route: 064
     Dates: start: 20111214, end: 20120117
  2. TACROLIMUS [Suspect]
     Active Substance: TACROLIMUS
     Indication: Foetal exposure during pregnancy
     Dosage: UNK
     Route: 064
  3. TACROLIMUS [Suspect]
     Active Substance: TACROLIMUS
     Indication: Embolism venous
     Dosage: 6 MG, QD
     Route: 064
  4. TACROLIMUS [Suspect]
     Active Substance: TACROLIMUS
     Indication: Systemic lupus erythematosus
     Dosage: UNK
     Route: 064
  5. TACROLIMUS [Suspect]
     Active Substance: TACROLIMUS
     Dosage: 6 MG, QD
     Route: 064
  6. SIMVASTATIN [Suspect]
     Active Substance: SIMVASTATIN
     Indication: Foetal exposure during pregnancy
     Dosage: UNK
     Route: 064
  7. SIMVASTATIN [Suspect]
     Active Substance: SIMVASTATIN
     Dosage: UNKNOWN
     Route: 064
     Dates: start: 20111214, end: 20120320
  8. SIMVASTATIN [Suspect]
     Active Substance: SIMVASTATIN
     Dosage: UNK
     Route: 064
  9. SIMVASTATIN [Suspect]
     Active Substance: SIMVASTATIN
     Dosage: UNKNOWN
     Route: 064
     Dates: start: 20111214, end: 20120320
  10. SIMVASTATIN [Suspect]
     Active Substance: SIMVASTATIN
     Dosage: UNK
     Route: 064
  11. SIMVASTATIN [Suspect]
     Active Substance: SIMVASTATIN
     Dosage: UNKNOWN
     Route: 064
     Dates: start: 20111214, end: 20120320
  12. ALBUTEROL SULFATE [Suspect]
     Active Substance: ALBUTEROL SULFATE
     Indication: Foetal exposure during pregnancy
     Dosage: UNKNOWN, PRN
     Route: 064
  13. ALBUTEROL SULFATE [Suspect]
     Active Substance: ALBUTEROL SULFATE
     Route: 064
  14. ALBUTEROL SULFATE [Suspect]
     Active Substance: ALBUTEROL SULFATE
     Dosage: UNKNOWN, PRN
     Route: 064
  15. ALBUTEROL SULFATE [Suspect]
     Active Substance: ALBUTEROL SULFATE
     Route: 064
  16. METAMIZOLE SODIUM [Suspect]
     Active Substance: METAMIZOLE SODIUM
     Indication: Foetal exposure during pregnancy
     Dosage: UNKNOWN
     Route: 064
  17. METAMIZOLE SODIUM [Suspect]
     Active Substance: METAMIZOLE SODIUM
  18. METAMIZOLE SODIUM [Suspect]
     Active Substance: METAMIZOLE SODIUM
  19. METAMIZOLE SODIUM [Suspect]
     Active Substance: METAMIZOLE SODIUM
  20. METAMIZOLE SODIUM [Suspect]
     Active Substance: METAMIZOLE SODIUM
  21. METAMIZOLE SODIUM [Suspect]
     Active Substance: METAMIZOLE SODIUM
  22. METAMIZOLE SODIUM [Suspect]
     Active Substance: METAMIZOLE SODIUM
  23. METAMIZOLE SODIUM [Suspect]
     Active Substance: METAMIZOLE SODIUM
  24. METAMIZOLE SODIUM [Suspect]
     Active Substance: METAMIZOLE SODIUM
  25. METAMIZOLE SODIUM [Suspect]
     Active Substance: METAMIZOLE SODIUM
  26. METAMIZOLE SODIUM [Suspect]
     Active Substance: METAMIZOLE SODIUM
  27. METAMIZOLE SODIUM [Suspect]
     Active Substance: METAMIZOLE SODIUM
  28. METAMIZOLE SODIUM [Suspect]
     Active Substance: METAMIZOLE SODIUM
  29. METAMIZOLE SODIUM [Suspect]
     Active Substance: METAMIZOLE SODIUM
  30. METAMIZOLE SODIUM [Suspect]
     Active Substance: METAMIZOLE SODIUM
  31. METAMIZOLE SODIUM [Suspect]
     Active Substance: METAMIZOLE SODIUM
  32. UNSPECIFIED INGREDIENT [Suspect]
     Active Substance: UNSPECIFIED INGREDIENT
     Indication: Foetal exposure during pregnancy
     Dosage: UNKNOWN
     Route: 064
  33. ASPIRIN [Suspect]
     Active Substance: ASPIRIN
     Indication: Foetal exposure during pregnancy
     Dosage: 100 MG, QD
     Route: 064
     Dates: start: 20111214, end: 20120320
  34. ASPIRIN [Suspect]
     Active Substance: ASPIRIN
     Indication: Embolism venous
     Dosage: 100 MG, QD
     Route: 064
     Dates: start: 20111214, end: 20120320
  35. ASPIRIN [Suspect]
     Active Substance: ASPIRIN
     Indication: Systemic lupus erythematosus
  36. XARELTO [Suspect]
     Active Substance: RIVAROXABAN
     Indication: Foetal exposure during pregnancy
     Dosage: UNKNOWN
     Route: 064
  37. RITUXIMAB [Suspect]
     Active Substance: RITUXIMAB
     Indication: Systemic lupus erythematosus
     Dosage: UNK
     Route: 064
  38. TORSEMIDE [Suspect]
     Active Substance: TORSEMIDE
     Indication: Foetal exposure during pregnancy
     Dosage: UNK
     Route: 064
  39. TORSEMIDE [Suspect]
     Active Substance: TORSEMIDE
     Dosage: 100 MG, QD
     Route: 064
     Dates: start: 20111214, end: 20120320
  40. TORSEMIDE [Suspect]
     Active Substance: TORSEMIDE
     Dosage: UNK
     Route: 064
  41. TORSEMIDE [Suspect]
     Active Substance: TORSEMIDE
     Dosage: 100 MG, QD
     Route: 064
     Dates: start: 20111214, end: 20120320
  42. PANTOZOL [Suspect]
     Active Substance: PANTOPRAZOLE SODIUM
     Indication: Foetal exposure during pregnancy
     Dosage: 40 MG, QD
     Route: 064
     Dates: start: 20111214, end: 20120320
  43. NICOTINE [Suspect]
     Active Substance: NICOTINE
     Indication: Foetal exposure during pregnancy
     Dosage: UNK
     Route: 064
  44. NICOTINE [Suspect]
     Active Substance: NICOTINE
     Dosage: UNKNOWN
     Route: 064
  45. NICOTINE [Suspect]
     Active Substance: NICOTINE
     Dosage: UNK
     Route: 064
  46. NICOTINE [Suspect]
     Active Substance: NICOTINE
     Dosage: UNKNOWN
     Route: 064
  47. METAMIZOLE [Suspect]
     Active Substance: METAMIZOLE
     Indication: Foetal exposure during pregnancy
     Dosage: UNKNOWN
     Route: 064
  48. RAMIPRIL [Suspect]
     Active Substance: RAMIPRIL
     Indication: Foetal exposure during pregnancy
     Dosage: 20 MG, QD
     Route: 064
     Dates: start: 20111214, end: 20120320
  49. HYDROXYCHLOROQUINE [Suspect]
     Active Substance: HYDROXYCHLOROQUINE
     Indication: Foetal exposure during pregnancy
     Dosage: UNK
     Route: 064
  50. HYDROXYCHLOROQUINE [Suspect]
     Active Substance: HYDROXYCHLOROQUINE
     Dosage: 400 MG, QD
     Route: 064
     Dates: start: 20111214, end: 20120320
  51. HYDROXYCHLOROQUINE [Suspect]
     Active Substance: HYDROXYCHLOROQUINE
     Dosage: UNK
     Route: 064
  52. HYDROXYCHLOROQUINE [Suspect]
     Active Substance: HYDROXYCHLOROQUINE
     Dosage: 400 MG, QD
     Route: 064
     Dates: start: 20111214, end: 20120320
  53. PREDNISOLONE [Suspect]
     Active Substance: PREDNISOLONE
     Indication: Foetal exposure during pregnancy
     Dosage: 10 MG, QD
     Route: 064
     Dates: start: 20111214, end: 20120320
  54. ENOXAPARIN SODIUM [Suspect]
     Active Substance: ENOXAPARIN SODIUM
     Indication: Foetal exposure during pregnancy
     Dosage: 200 MG, QD
     Route: 064
     Dates: start: 20111214, end: 20120320
  55. EZETIMIBE [Suspect]
     Active Substance: EZETIMIBE
     Indication: Foetal exposure during pregnancy
     Dosage: UNKNOWN
     Route: 064
  56. RIVAROXABAN [Suspect]
     Active Substance: RIVAROXABAN
     Indication: Product used for unknown indication
     Route: 064
  57. RIVAROXABAN [Suspect]
     Active Substance: RIVAROXABAN
     Route: 064
  58. CYTOTEC [Concomitant]
     Active Substance: MISOPROSTOL
     Indication: Abortion induced
     Dosage: UNK
     Route: 064
     Dates: start: 20120320, end: 20120320
  59. MIFEPRISTONE [Concomitant]
     Active Substance: MIFEPRISTONE
     Indication: Abortion induced
     Dosage: UNK
     Route: 064
     Dates: start: 20120320, end: 20120320
  60. CYCLOPHOSPHAMIDE [Concomitant]
     Active Substance: CYCLOPHOSPHAMIDE
     Indication: Systemic lupus erythematosus
     Dosage: 3000 MG, CUMULATIVE
     Route: 064

REACTIONS (6)
  - Congenital cardiovascular anomaly [Fatal]
  - Truncus arteriosus persistent [Fatal]
  - Ventricular septal defect [Fatal]
  - Cardiac septal defect [Fatal]
  - Abortion induced [Fatal]
  - Foetal exposure during pregnancy [Unknown]
